FAERS Safety Report 14665489 (Version 1)
Quarter: 2018Q1

REPORT INFORMATION
  Report Type: Spontaneous
  Country: GB (occurrence: GB)
  Receive Date: 20180321
  Receipt Date: 20180321
  Transmission Date: 20180509
  Serious: Yes (Other)
  Sender: FDA-Public Use
  Company Number: GB-TEVA-2018-GB-869696

PATIENT
  Age: 67 Year
  Sex: Female
  Weight: 57.38 kg

DRUGS (1)
  1. PREDNISOLONE. [Suspect]
     Active Substance: PREDNISOLONE
     Indication: LOWER RESPIRATORY TRACT INFECTION
     Dosage: TWO 5MG TABLETS EVERY FEW HOURS INSTEAD OF SIX TABLETS ONCE DAILY.
     Route: 048

REACTIONS (3)
  - Drug administration error [Unknown]
  - Muscle spasms [Recovering/Resolving]
  - Malaise [Recovering/Resolving]
